FAERS Safety Report 13638420 (Version 2)
Quarter: 2017Q2

REPORT INFORMATION
  Report Type: Report from Study
  Country: US (occurrence: US)
  Receive Date: 20170609
  Receipt Date: 20170622
  Transmission Date: 20170830
  Serious: Yes (Disabling, Other)
  Sender: FDA-Public Use
  Company Number: US-GILEAD-2017-0276857

PATIENT
  Age: 88 Year
  Sex: Female

DRUGS (1)
  1. RANOLAZINE. [Suspect]
     Active Substance: RANOLAZINE
     Indication: ANGINA PECTORIS
     Dosage: UNK
     Route: 048
     Dates: start: 2012

REACTIONS (5)
  - Dementia [Not Recovered/Not Resolved]
  - Walking aid user [Not Recovered/Not Resolved]
  - Drug dose omission [Unknown]
  - Chest pain [Unknown]
  - Myocardial infarction [Unknown]

NARRATIVE: CASE EVENT DATE: 2012
